FAERS Safety Report 20158907 (Version 2)
Quarter: 2022Q1

REPORT INFORMATION
  Report Type: Spontaneous
  Country: US (occurrence: None)
  Receive Date: 20211208
  Receipt Date: 20220116
  Transmission Date: 20220424
  Serious: Yes (Other)
  Sender: FDA-Public Use
  Company Number: US-ROCHE-2974992

PATIENT
  Sex: Male

DRUGS (2)
  1. ESBRIET [Suspect]
     Active Substance: PIRFENIDONE
     Indication: Idiopathic pulmonary fibrosis
     Dosage: 3 TABLET IN MORNING AND 3 TABLET IN EVENING
     Route: 048
     Dates: start: 20210202
  2. ESBRIET [Suspect]
     Active Substance: PIRFENIDONE
     Dosage: 3 TABLETS IN MORNING AND 3 TABLETS IN EVENING
     Route: 048

REACTIONS (2)
  - Sudden hearing loss [Unknown]
  - Off label use [Unknown]
